FAERS Safety Report 12388589 (Version 1)
Quarter: 2016Q2

REPORT INFORMATION
  Report Type: Spontaneous
  Country: None (occurrence: None)
  Receive Date: 20160519
  Receipt Date: 20160519
  Transmission Date: 20160815
  Serious: No
  Sender: FDA-Public Use
  Company Number: None

PATIENT
  Age: 26 Year
  Sex: Female
  Weight: 70.76 kg

DRUGS (4)
  1. XANAX [Concomitant]
     Active Substance: ALPRAZOLAM
  2. SKYLA [Suspect]
     Active Substance: LEVONORGESTREL
  3. ZOLOFT [Concomitant]
     Active Substance: SERTRALINE HYDROCHLORIDE
  4. CLARITIN [Concomitant]
     Active Substance: LORATADINE

REACTIONS (12)
  - Haemorrhage [None]
  - Vulvovaginal discomfort [None]
  - Acne cystic [None]
  - Scar [None]
  - Uterine spasm [None]
  - Device dislocation [None]
  - Back pain [None]
  - Migraine [None]
  - Menorrhagia [None]
  - Vulvovaginal pain [None]
  - Cyst [None]
  - Weight increased [None]

NARRATIVE: CASE EVENT DATE: 20160518
